FAERS Safety Report 6940155-8 (Version None)
Quarter: 2010Q3

REPORT INFORMATION
  Report Type: 
  Country: None (occurrence: None)
  Receive Date: 20100825
  Receipt Date: 20100820
  Transmission Date: 20110219
  Serious: Yes (Hospitalization)
  Sender: FDA-Public Use
  Company Number: AR-ASTRAZENECA-2010SE37968

PATIENT
  Age: 6395 Day
  Sex: Female

DRUGS (2)
  1. TERBUTALINE (BRICANYL) [Suspect]
     Indication: ASTHMA
     Route: 055
     Dates: start: 20090923
  2. SYMBICORT [Suspect]
     Indication: ASTHMA
     Dosage: 160/4.5 UG ONE INHALATION TWO TIMES A DAY
     Route: 055
     Dates: start: 20090923

REACTIONS (1)
  - PNEUMONIA [None]
